FAERS Safety Report 6914601-X (Version None)
Quarter: 2010Q3

REPORT INFORMATION
  Report Type: 
  Country: None (occurrence: None)
  Receive Date: 20100804
  Receipt Date: 20100804
  Transmission Date: 20110219
  Serious: Yes (Hospitalization)
  Sender: FDA-Public Use
  Company Number: None

PATIENT
  Age: 84 Year
  Sex: Female

DRUGS (1)
  1. ULTRAM [Suspect]
     Indication: ARTHRALGIA
     Dosage: 50MG BID ORAL (PO)
     Route: 048
     Dates: start: 20100716, end: 20100719

REACTIONS (2)
  - LIP SWELLING [None]
  - SWELLING FACE [None]
